FAERS Safety Report 5407789-3 (Version None)
Quarter: 2007Q3

REPORT INFORMATION
  Report Type: 
  Country: None (occurrence: None)
  Receive Date: 20070807
  Receipt Date: 20070802
  Transmission Date: 20080115
  Serious: Yes (Other)
  Sender: FDA-Public Use
  Company Number: US-GILEAD-2007-0012715

PATIENT
  Sex: Male

DRUGS (2)
  1. CIDOFOVIR [Suspect]
     Indication: HIV INFECTION
     Route: 065
  2. VIREAD [Suspect]
     Indication: HIV INFECTION
     Route: 065

REACTIONS (1)
  - RENAL FAILURE [None]
